FAERS Safety Report 5729837-3 (Version None)
Quarter: 2008Q2

REPORT INFORMATION
  Report Type: 
  Country: None (occurrence: None)
  Receive Date: 20080501
  Receipt Date: 20080421
  Transmission Date: 20081010
  Serious: Yes (Death, Life-Threatening, Hospitalization, Disabling)
  Sender: FDA-Public Use
  Company Number: 000737

PATIENT
  Age: 25 Year
  Sex: Male

DRUGS (6)
  1. BUSULFEX [Suspect]
     Indication: STEM CELL TRANSPLANT
     Dosage: 30 ML INTRAVENOUS
     Route: 042
     Dates: start: 20070824, end: 20070825
  2. FLUDARABINE PHOSPHATE [Concomitant]
  3. PHENYTOIN [Concomitant]
  4. NEUPOGEN [Concomitant]
  5. METHOTREXATE [Concomitant]
  6. CYCLOSPORINE [Concomitant]

REACTIONS (19)
  - ACUTE MYELOID LEUKAEMIA RECURRENT [None]
  - ALTERED STATE OF CONSCIOUSNESS [None]
  - ANOREXIA [None]
  - BONE MARROW FAILURE [None]
  - CARDIAC ARREST [None]
  - CELLULITIS [None]
  - CONVULSION [None]
  - DIARRHOEA [None]
  - ENGRAFT FAILURE [None]
  - GENERAL PHYSICAL HEALTH DETERIORATION [None]
  - HEPATIC FUNCTION ABNORMAL [None]
  - MALAISE [None]
  - MUSCLE SPASMS [None]
  - NAUSEA [None]
  - RENAL IMPAIRMENT [None]
  - STEM CELL TRANSPLANT [None]
  - STOMATITIS [None]
  - VENTRICULAR TACHYCARDIA [None]
  - VOMITING [None]
